FAERS Safety Report 5350971-4 (Version None)
Quarter: 2007Q2

REPORT INFORMATION
  Report Type: 
  Country: None (occurrence: None)
  Receive Date: 20070606
  Receipt Date: 20070530
  Transmission Date: 20071010
  Serious: Yes (Hospitalization)
  Sender: FDA-Public Use
  Company Number: TAP2007Q00678

PATIENT
  Age: 39 Year
  Sex: Female

DRUGS (4)
  1. LUPRON DEPOT [Suspect]
     Indication: ENDOMETRIOSIS
     Dosage: 3.75 MG, ONCE, INTRAMUSCULAR
     Route: 030
     Dates: start: 20070402, end: 20070402
  2. LUVOX [Concomitant]
  3. LEXAPRO [Concomitant]
  4. CORTISONE ACETATE [Concomitant]

REACTIONS (7)
  - AMNESIA [None]
  - COGNITIVE DISORDER [None]
  - DYSARTHRIA [None]
  - FEELING OF DESPAIR [None]
  - HEADACHE [None]
  - SUICIDAL IDEATION [None]
  - THINKING ABNORMAL [None]
